FAERS Safety Report 4435047-2 (Version None)
Quarter: 2004Q3

REPORT INFORMATION
  Report Type: 
  Country: None (occurrence: None)
  Receive Date: 20040826
  Receipt Date: 20040826
  Transmission Date: 20050211
  Serious: No
  Sender: FDA-Public Use
  Company Number: None

PATIENT
  Age: 68 Year
  Sex: Female
  Weight: 58.9676 kg

DRUGS (3)
  1. ACTONEL [Suspect]
     Indication: OSTEOPOROSIS
     Dosage: 30 MG; ONCE A WEEK
     Dates: start: 20020114, end: 20020513
  2. FOSAMAX [Suspect]
     Indication: OSTEOPOROSIS
     Dosage: 70 MG; ONCE A WEEK
     Dates: start: 20031201, end: 20040405
  3. CALCUIM W VIT D [Concomitant]

REACTIONS (1)
  - DIARRHOEA [None]
